FAERS Safety Report 18997037 (Version 1)
Quarter: 2021Q1

REPORT INFORMATION
  Report Type: Spontaneous
  Country: US (occurrence: US)
  Receive Date: 20210310
  Receipt Date: 20210310
  Transmission Date: 20210420
  Serious: No
  Sender: FDA-Public Use
  Company Number: None

PATIENT
  Sex: Female

DRUGS (1)
  1. IV ++ SCIG 24G 12MM HIGH FLO 1GM/4GM/10GM NONE [Suspect]
     Active Substance: HUMAN IMMUNOGLOBULIN G
     Indication: POLYNEUROPATHY
     Route: 058
     Dates: start: 202101

REACTIONS (2)
  - Device leakage [None]
  - Incorrect dose administered [None]
